FAERS Safety Report 8936572 (Version 1)
Quarter: 2012Q4

REPORT INFORMATION
  Report Type: 
  Country: TH (occurrence: TH)
  Receive Date: 20121130
  Receipt Date: 20121130
  Transmission Date: 20130627
  Serious: Yes (Other)
  Sender: FDA-Public Use
  Company Number: TH-PFIZER INC-2012289539

PATIENT
  Age: 42 Year
  Sex: Male

DRUGS (3)
  1. ATENOLOL [Suspect]
     Indication: HYPERTENSION
     Dosage: 50mg per day for one year
     Route: 065
  2. CHLORHEXIDINE [Concomitant]
     Dosage: UNK
     Route: 061
  3. ENALAPRIL [Concomitant]
     Indication: HYPERTENSION
     Dosage: 10 mg, daily for 1 week
     Route: 065

REACTIONS (1)
  - Pemphigoid [Recovered/Resolved]
